FAERS Safety Report 22010777 (Version 11)
Quarter: 2024Q3

REPORT INFORMATION
  Report Type: Report from Study
  Country: CN (occurrence: CN)
  Receive Date: 20230220
  Receipt Date: 20240807
  Transmission Date: 20241017
  Serious: Yes (Hospitalization, Other)
  Sender: TAKEDA
  Company Number: CN-TAKEDA-2022TUS060674

PATIENT
  Age: 63 Year
  Sex: Female
  Weight: 49 kg

DRUGS (7)
  1. IXAZOMIB [Suspect]
     Active Substance: IXAZOMIB
     Indication: Plasma cell myeloma
     Dosage: 3 MILLIGRAM
     Route: 048
     Dates: start: 20211216
  2. ZINC GLUCONATE [Concomitant]
     Active Substance: ZINC GLUCONATE
     Indication: Mineral supplementation
     Dosage: 10 MILLILITER, TID
     Route: 048
     Dates: start: 20211201
  3. ZINC GLUCONATE [Concomitant]
     Active Substance: ZINC GLUCONATE
     Indication: Mineral supplementation
  4. ACYCLOVIR [Concomitant]
     Active Substance: ACYCLOVIR
     Indication: Prophylaxis
     Dosage: 0.4 GRAM, QD
     Route: 048
     Dates: start: 20211201, end: 20211227
  5. ZOLEDRONIC ACID [Concomitant]
     Active Substance: ZOLEDRONIC ACID
     Indication: Prophylaxis
     Dosage: 4 MILLIGRAM
     Route: 041
     Dates: start: 20211129
  6. CALCITRIOL [Concomitant]
     Active Substance: CALCITRIOL
     Indication: Osteoporosis prophylaxis
     Dosage: 0.25 MICROGRAM, BID
     Route: 048
     Dates: start: 20211102
  7. VITAMINS [Concomitant]
     Active Substance: VITAMINS
     Indication: Vitamin supplementation
     Dosage: UNK UNK, QD
     Route: 048
     Dates: start: 20211201, end: 20211227

REACTIONS (9)
  - Pneumonia [Recovered/Resolved]
  - Hypokalaemia [Recovered/Resolved]
  - Herpes zoster [Recovered/Resolved]
  - Hypercholesterolaemia [Not Recovered/Not Resolved]
  - Low density lipoprotein increased [Not Recovered/Not Resolved]
  - Hypertriglyceridaemia [Not Recovered/Not Resolved]
  - Upper respiratory tract infection [Recovered/Resolved]
  - Platelet count decreased [Recovered/Resolved]
  - Off label use [Unknown]

NARRATIVE: CASE EVENT DATE: 20211216
